FAERS Safety Report 8982911 (Version 5)
Quarter: 2013Q3

REPORT INFORMATION
  Report Type: Spontaneous
  Country: US (occurrence: US)
  Receive Date: 20121224
  Receipt Date: 20130905
  Transmission Date: 20140515
  Serious: Yes (Other)
  Sender: FDA-Public Use
  Company Number: US-PFIZER INC-2012324723

PATIENT
  Age: 59 Year
  Sex: Female
  Weight: 67.12 kg

DRUGS (6)
  1. LYRICA [Suspect]
     Indication: NERVE INJURY
     Dosage: 300 MG, 2X/DAY
  2. LYRICA [Suspect]
     Indication: NEURALGIA
     Dosage: 300 MG, 2X/DAY
     Route: 048
  3. METFORMIN [Concomitant]
     Indication: DIABETES MELLITUS
     Dosage: 500 MG, DAILY
  4. NUCYNTA ER [Concomitant]
     Indication: NERVE INJURY
     Dosage: 100 MG, 2X/DAY
  5. LASIX [Concomitant]
     Dosage: UNK
  6. LORCET [Concomitant]
     Dosage: UNK

REACTIONS (4)
  - Expired drug administered [Unknown]
  - Herpes zoster [Recovered/Resolved]
  - Influenza [Not Recovered/Not Resolved]
  - Fall [Unknown]
